FAERS Safety Report 12755864 (Version 1)
Quarter: 2016Q3

REPORT INFORMATION
  Report Type: Spontaneous
  Country: None (occurrence: DE)
  Receive Date: 20160916
  Receipt Date: 20160916
  Transmission Date: 20161109
  Serious: Yes (Other)
  Sender: FDA-Public Use
  Company Number: DE-MERCK KGAA-1057386

PATIENT

DRUGS (1)
  1. NOVOTHYROX [Suspect]
     Active Substance: LEVOTHYROXINE SODIUM

REACTIONS (7)
  - Hyperthyroidism [None]
  - Malaise [None]
  - Drug interaction [None]
  - Feeling abnormal [None]
  - Hypertension [None]
  - Aggression [None]
  - Drug intolerance [None]
